FAERS Safety Report 21830890 (Version 28)
Quarter: 2025Q1

REPORT INFORMATION
  Report Type: Report from Study
  Country: CA (occurrence: CA)
  Receive Date: 20230106
  Receipt Date: 20250213
  Transmission Date: 20250409
  Serious: Yes (Other)
  Sender: TAKEDA
  Company Number: CA-TAKEDA-2022TUS021550

PATIENT
  Age: 2 Year
  Sex: Male

DRUGS (18)
  1. RURIOCTOCOG ALFA PEGOL [Suspect]
     Active Substance: RURIOCTOCOG ALFA PEGOL
     Indication: Factor VIII deficiency
     Dosage: 500 INTERNATIONAL UNIT, 2/WEEK
     Dates: start: 20210401
  2. RURIOCTOCOG ALFA PEGOL [Suspect]
     Active Substance: RURIOCTOCOG ALFA PEGOL
     Dosage: 500 INTERNATIONAL UNIT, 2/WEEK
  3. RURIOCTOCOG ALFA PEGOL [Suspect]
     Active Substance: RURIOCTOCOG ALFA PEGOL
     Dosage: 500 INTERNATIONAL UNIT, 2/WEEK
  4. RURIOCTOCOG ALFA PEGOL [Suspect]
     Active Substance: RURIOCTOCOG ALFA PEGOL
     Dosage: 500 INTERNATIONAL UNIT, 2/WEEK
  5. RURIOCTOCOG ALFA PEGOL [Suspect]
     Active Substance: RURIOCTOCOG ALFA PEGOL
     Dosage: UNK UNK, 2/WEEK
  6. RURIOCTOCOG ALFA PEGOL [Suspect]
     Active Substance: RURIOCTOCOG ALFA PEGOL
     Dosage: 1000 INTERNATIONAL UNIT, 2/WEEK
  7. RURIOCTOCOG ALFA PEGOL [Suspect]
     Active Substance: RURIOCTOCOG ALFA PEGOL
  8. RURIOCTOCOG ALFA PEGOL [Suspect]
     Active Substance: RURIOCTOCOG ALFA PEGOL
     Dosage: 1000 INTERNATIONAL UNIT, 2/WEEK
  9. RURIOCTOCOG ALFA PEGOL [Suspect]
     Active Substance: RURIOCTOCOG ALFA PEGOL
     Dosage: 1000 INTERNATIONAL UNIT, 2/WEEK
  10. RURIOCTOCOG ALFA PEGOL [Suspect]
     Active Substance: RURIOCTOCOG ALFA PEGOL
     Dosage: UNK UNK, 2/WEEK
  11. RURIOCTOCOG ALFA PEGOL [Suspect]
     Active Substance: RURIOCTOCOG ALFA PEGOL
     Dosage: UNK UNK, 2/WEEK
  12. RURIOCTOCOG ALFA PEGOL [Suspect]
     Active Substance: RURIOCTOCOG ALFA PEGOL
  13. RURIOCTOCOG ALFA PEGOL [Suspect]
     Active Substance: RURIOCTOCOG ALFA PEGOL
     Dosage: 1000 INTERNATIONAL UNIT, Q2WEEKS
  14. RURIOCTOCOG ALFA PEGOL [Suspect]
     Active Substance: RURIOCTOCOG ALFA PEGOL
     Dosage: UNK UNK, Q2WEEKS
  15. RURIOCTOCOG ALFA PEGOL [Suspect]
     Active Substance: RURIOCTOCOG ALFA PEGOL
     Dosage: 1000 INTERNATIONAL UNIT, Q2WEEKS
  16. RURIOCTOCOG ALFA PEGOL [Suspect]
     Active Substance: RURIOCTOCOG ALFA PEGOL
     Dosage: 1000 INTERNATIONAL UNIT, Q2WEEKS
  17. RURIOCTOCOG ALFA PEGOL [Suspect]
     Active Substance: RURIOCTOCOG ALFA PEGOL
     Dosage: 1000 INTERNATIONAL UNIT, 2/WEEK
  18. RURIOCTOCOG ALFA PEGOL [Suspect]
     Active Substance: RURIOCTOCOG ALFA PEGOL
     Dosage: 1000 INTERNATIONAL UNIT, Q2WEEKS

REACTIONS (39)
  - Haemarthrosis [Recovering/Resolving]
  - Fall [Recovering/Resolving]
  - Skin laceration [Recovering/Resolving]
  - Contusion [Recovering/Resolving]
  - Eye contusion [Recovering/Resolving]
  - Decreased appetite [Unknown]
  - Cough [Not Recovered/Not Resolved]
  - Vomiting [Recovered/Resolved]
  - Inappropriate schedule of product administration [Unknown]
  - Product preparation issue [Recovered/Resolved]
  - Abdominal discomfort [Recovering/Resolving]
  - Nasal congestion [Not Recovered/Not Resolved]
  - Rhinorrhoea [Not Recovered/Not Resolved]
  - Infection [Unknown]
  - Irritability [Unknown]
  - Restlessness [Unknown]
  - Infusion site haemorrhage [Unknown]
  - Swelling face [Recovering/Resolving]
  - Pyrexia [Recovering/Resolving]
  - Head injury [Recovering/Resolving]
  - Mass [Recovering/Resolving]
  - Weight increased [Unknown]
  - Eye swelling [Recovering/Resolving]
  - Eye injury [Unknown]
  - Respiratory rate decreased [Unknown]
  - Oropharyngeal pain [Recovering/Resolving]
  - Asthenia [Recovering/Resolving]
  - Rash macular [Recovering/Resolving]
  - Pain [Recovering/Resolving]
  - Rash erythematous [Unknown]
  - Arthropod bite [Unknown]
  - Product dose omission issue [Unknown]
  - Device difficult to use [Unknown]
  - Malaise [Recovering/Resolving]
  - Heart rate abnormal [Unknown]
  - Respiration abnormal [Unknown]
  - Blood pressure abnormal [Unknown]
  - Device issue [Unknown]
  - Poor venous access [Unknown]

NARRATIVE: CASE EVENT DATE: 20220301
